FAERS Safety Report 7535700-8 (Version None)
Quarter: 2011Q2

REPORT INFORMATION
  Report Type: 
  Country: None (occurrence: None)
  Receive Date: 20110602
  Receipt Date: 20110523
  Transmission Date: 20111010
  Serious: Yes (Other)
  Sender: FDA-Public Use
  Company Number: ACO_24246_2011

PATIENT
  Age: 58 Year
  Sex: Female
  Weight: 95.2 kg

DRUGS (7)
  1. AVONEX [Concomitant]
  2. PROVIGIL [Concomitant]
  3. AMPYRA [Suspect]
     Indication: GAIT DISTURBANCE
     Dosage: 10 MG, BID, ORAL
     Route: 048
     Dates: start: 20110420, end: 20110512
  4. BACLOFEN [Concomitant]
  5. OXYBUTYNIN [Concomitant]
  6. CELEXA 100582602/ (CITALOPRAM HYDROBROMIDE) [Concomitant]
  7. MULTIVITAMIN /00097801/ (ASCORBIC ACID, CALCIUM PANTOTHENATE, ERGOCALC [Concomitant]

REACTIONS (3)
  - CHEST DISCOMFORT [None]
  - HEADACHE [None]
  - THROAT IRRITATION [None]
